FAERS Safety Report 12896561 (Version 1)
Quarter: 2016Q4

REPORT INFORMATION
  Report Type: Spontaneous
  Country: US (occurrence: US)
  Receive Date: 20161028
  Receipt Date: 20161028
  Transmission Date: 20170207
  Serious: No
  Sender: FDA-Public Use
  Company Number: None

PATIENT
  Age: 71 Year
  Sex: Male
  Weight: 71.1 kg

DRUGS (1)
  1. SILVADENE [Suspect]
     Active Substance: SILVER SULFADIAZINE
     Indication: RASH
     Route: 061
     Dates: start: 20160921, end: 20160926

REACTIONS (3)
  - Irritability [None]
  - Burning sensation [None]
  - Rash [None]

NARRATIVE: CASE EVENT DATE: 20160922
